FAERS Safety Report 18907968 (Version 2)
Quarter: 2023Q1

REPORT INFORMATION
  Report Type: Spontaneous
  Country: GB (occurrence: GB)
  Receive Date: 20210218
  Receipt Date: 20230214
  Transmission Date: 20230417
  Serious: No
  Sender: FDA-Public Use
  Company Number: None

PATIENT
  Age: 21 Year
  Sex: Female

DRUGS (8)
  1. AMOXICILLIN [Suspect]
     Active Substance: AMOXICILLIN
     Indication: Hereditary angioedema
     Dosage: UNK
     Route: 065
  2. CEPHALEXIN [Suspect]
     Active Substance: CEPHALEXIN
     Indication: Hereditary angioedema
     Dosage: UNK
     Route: 065
  3. PENICILLIN G POTASSIUM [Suspect]
     Active Substance: PENICILLIN G POTASSIUM
     Indication: Hereditary angioedema
     Dosage: UNK
     Route: 065
  4. FIRAZYR [Suspect]
     Active Substance: ICATIBANT ACETATE
     Indication: Hereditary angioedema
     Dosage: UNK (ICATIBANT, SOLUTION FOR INJECTION, NEEDLES, PRE-FILLED SYRINGE)
     Route: 065
     Dates: start: 20120426
  5. FIRAZYR [Suspect]
     Active Substance: ICATIBANT ACETATE
     Dosage: UNK ( ICATIBANT ACETATE, SOLUTION FOR INJECTION, NEEDLES, PRE-FILLED SYRINGE)
     Route: 065
     Dates: start: 20120903
  6. FIRAZYR [Suspect]
     Active Substance: ICATIBANT ACETATE
     Dosage: UNK (ICATIBANT, SOLUTION FOR INJECTION, NEEDLES, PRE-FILLED SYRINGE)
     Route: 065
  7. DESOGESTREL [Concomitant]
     Active Substance: DESOGESTREL
     Indication: Hereditary angioedema
     Dosage: 10 MILLIGRAM, BID
     Route: 048
     Dates: start: 20120223
  8. TRANEXAMIC ACID [Concomitant]
     Active Substance: TRANEXAMIC ACID
     Indication: Hereditary angioedema
     Dosage: 1 GRAM
     Route: 048
     Dates: start: 20120223

REACTIONS (1)
  - Rash erythematous [Recovered/Resolved]

NARRATIVE: CASE EVENT DATE: 20130308
